FAERS Safety Report 12378238 (Version 1)
Quarter: 2016Q2

REPORT INFORMATION
  Report Type: Spontaneous
  Country: US (occurrence: US)
  Receive Date: 20160517
  Receipt Date: 20160517
  Transmission Date: 20160815
  Serious: No
  Sender: FDA-Public Use
  Company Number: US-JNJFOC-20160406632

PATIENT
  Sex: Female
  Weight: 106.6 kg

DRUGS (1)
  1. TYLENOL EXTRA STRENGTH [Suspect]
     Active Substance: ACETAMINOPHEN
     Indication: PAIN
     Dosage: 1 TO 2 TABLETS, AS NEEDED
     Route: 048
     Dates: start: 20160406

REACTIONS (1)
  - Expired product administered [Unknown]
